FAERS Safety Report 10503524 (Version 2)
Quarter: 2014Q4

REPORT INFORMATION
  Report Type: Report from Study
  Country: NO (occurrence: NO)
  Receive Date: 20141008
  Receipt Date: 20141008
  Transmission Date: 20150528
  Serious: Yes (Life-Threatening, Hospitalization, Other)
  Sender: FDA-Public Use
  Company Number: NO-BRISTOL-MYERS SQUIBB COMPANY-15375322

PATIENT
  Age: 56 Year
  Sex: Male

DRUGS (5)
  1. FORTECORTIN [Concomitant]
     Active Substance: DEXAMETHASONE
  2. BUDESONIDE. [Concomitant]
     Active Substance: BUDESONIDE
  3. LOPERAMIDE [Concomitant]
     Active Substance: LOPERAMIDE
  4. FRAGMIN [Concomitant]
     Active Substance: DALTEPARIN SODIUM
  5. IPILIMUMAB [Suspect]
     Active Substance: IPILIMUMAB
     Indication: MALIGNANT MELANOMA
     Dosage: NO OF COURSES = 2
     Route: 042
     Dates: start: 20100630, end: 20100721

REACTIONS (4)
  - Thrombocytopenia [Recovered/Resolved]
  - Cardiac arrest [Recovered/Resolved]
  - Renal failure [Recovered/Resolved]
  - Pulmonary embolism [Not Recovered/Not Resolved]

NARRATIVE: CASE EVENT DATE: 20101102
